FAERS Safety Report 12716418 (Version 1)
Quarter: 2016Q3

REPORT INFORMATION
  Report Type: Spontaneous
  Country: GB (occurrence: GB)
  Receive Date: 20160906
  Receipt Date: 20160906
  Transmission Date: 20161109
  Serious: Yes (Other)
  Sender: FDA-Public Use
  Company Number: GB-TEVA-687777ACC

PATIENT
  Age: 31 Year
  Sex: Male

DRUGS (13)
  1. CO-DYDRAMOL [Suspect]
     Active Substance: ACETAMINOPHEN\DIHYDROCODEINE
     Route: 065
  2. PAROXETINE. [Suspect]
     Active Substance: PAROXETINE
  3. DIAZEPAM. [Concomitant]
     Active Substance: DIAZEPAM
     Dates: start: 2000
  4. FLUOXETINE HYDROCHLORIDE. [Concomitant]
     Active Substance: FLUOXETINE HYDROCHLORIDE
  5. PAROXETINE. [Suspect]
     Active Substance: PAROXETINE
     Dates: start: 20000218
  6. SEROXAT [Suspect]
     Active Substance: PAROXETINE HYDROCHLORIDE
     Dosage: 20 MILLIGRAM DAILY;
     Route: 065
     Dates: start: 20000816
  7. FLUOXETINE HYDROCHLORIDE. [Concomitant]
     Active Substance: FLUOXETINE HYDROCHLORIDE
     Route: 065
     Dates: start: 2003
  8. PAROXETINE. [Suspect]
     Active Substance: PAROXETINE
     Indication: PRODUCT USED FOR UNKNOWN INDICATION
     Dosage: 200 MILLIGRAM DAILY;
     Dates: start: 20010329
  9. PAROXETINE. [Suspect]
     Active Substance: PAROXETINE
     Dosage: 80 MILLIGRAM DAILY;
     Dates: start: 20000626
  10. SEROXAT [Suspect]
     Active Substance: PAROXETINE HYDROCHLORIDE
     Route: 065
     Dates: start: 19991121, end: 200306
  11. PARACETAMOL [Suspect]
     Active Substance: ACETAMINOPHEN
     Route: 065
  12. PAROXETINE. [Suspect]
     Active Substance: PAROXETINE
     Dosage: 16 YEARS AGO
  13. SEROXAT [Suspect]
     Active Substance: PAROXETINE HYDROCHLORIDE
     Indication: PRODUCT USED FOR UNKNOWN INDICATION
     Route: 065
     Dates: start: 19991121, end: 200306

REACTIONS (20)
  - Depression [Unknown]
  - Dizziness [Not Recovered/Not Resolved]
  - Sleep disorder [Unknown]
  - Tearfulness [Unknown]
  - Overdose [Not Recovered/Not Resolved]
  - Nausea [Unknown]
  - Disturbance in attention [Unknown]
  - Tension [Not Recovered/Not Resolved]
  - Headache [Unknown]
  - Asthenia [Unknown]
  - Paraesthesia [Unknown]
  - Withdrawal syndrome [Unknown]
  - Apathy [Unknown]
  - Vomiting [Unknown]
  - Agitation [Unknown]
  - Depressed mood [Unknown]
  - Depressed mood [Unknown]
  - Suicidal ideation [Unknown]
  - Insomnia [Unknown]
  - Decreased appetite [Unknown]

NARRATIVE: CASE EVENT DATE: 200003
